FAERS Safety Report 13437874 (Version 1)
Quarter: 2017Q2

REPORT INFORMATION
  Report Type: Spontaneous
  Country: US (occurrence: US)
  Receive Date: 20170413
  Receipt Date: 20170413
  Transmission Date: 20170830
  Serious: No
  Sender: FDA-Public Use
  Company Number: US-SA-2016SA167885

PATIENT
  Age: 64 Year
  Sex: Male
  Weight: 106 kg

DRUGS (6)
  1. ALLEGRA-D 24 HOUR [Suspect]
     Active Substance: FEXOFENADINE HYDROCHLORIDE\PSEUDOEPHEDRINE HYDROCHLORIDE
     Indication: MULTIPLE ALLERGIES
     Dosage: START DATE: SEVERAL YEARS AGO. DOSE: 180MG/240MG.
     Route: 048
  2. ALLEGRA-D 24 HOUR [Suspect]
     Active Substance: FEXOFENADINE HYDROCHLORIDE\PSEUDOEPHEDRINE HYDROCHLORIDE
     Indication: SINUS DISORDER
     Dosage: START DATE: SEVERAL YEARS AGO. DOSE: 180MG/240MG.
     Route: 048
  3. LIPITOR [Concomitant]
     Active Substance: ATORVASTATIN CALCIUM
     Indication: BLOOD CHOLESTEROL
     Route: 065
  4. METAMUCIL [Concomitant]
     Active Substance: PLANTAGO SEED
     Route: 065
  5. FLAX SEED [Concomitant]
     Active Substance: FLAX SEED
     Route: 065
  6. FISH OIL [Concomitant]
     Active Substance: FISH OIL
     Route: 065

REACTIONS (2)
  - Medication residue present [Recovered/Resolved]
  - Drug ineffective [Unknown]
